FAERS Safety Report 9374804 (Version 3)
Quarter: 2013Q3

REPORT INFORMATION
  Report Type: Report from Study
  Country: US (occurrence: US)
  Receive Date: 20130628
  Receipt Date: 20130906
  Transmission Date: 20140515
  Serious: Yes (Other)
  Sender: FDA-Public Use
  Company Number: US-TEVA-415604USA

PATIENT
  Age: 16 Year
  Sex: Male

DRUGS (1)
  1. CLARAVIS [Suspect]
     Route: 048
     Dates: end: 20130703

REACTIONS (3)
  - Suicidal ideation [Recovering/Resolving]
  - Aggression [Recovering/Resolving]
  - Mood altered [Unknown]
